FAERS Safety Report 12854009 (Version 2)
Quarter: 2016Q4

REPORT INFORMATION
  Report Type: Spontaneous
  Country: JP (occurrence: JP)
  Receive Date: 20161017
  Receipt Date: 20161025
  Transmission Date: 20170207
  Serious: Yes (Hospitalization)
  Sender: FDA-Public Use
  Company Number: JP-JNJFOC-20161013074

PATIENT
  Age: 3 Decade

DRUGS (1)
  1. CONCERTA [Suspect]
     Active Substance: METHYLPHENIDATE HYDROCHLORIDE
     Indication: PRODUCT USED FOR UNKNOWN INDICATION
     Dosage: PRESCRIBED FOR ABOUT 1 MONTH
     Route: 048

REACTIONS (3)
  - Drug dispensing error [Unknown]
  - Hospitalisation [Unknown]
  - Off label use [Unknown]
